FAERS Safety Report 25684605 (Version 1)
Quarter: 2025Q3

REPORT INFORMATION
  Report Type: Spontaneous
  Country: EU (occurrence: EU)
  Receive Date: 20250815
  Receipt Date: 20250815
  Transmission Date: 20251021
  Serious: Yes (Hospitalization, Disabling)
  Sender: ROCHE
  Company Number: None

PATIENT
  Age: 47 Year
  Sex: Female
  Weight: 54 kg

DRUGS (3)
  1. TOCILIZUMAB [Suspect]
     Active Substance: TOCILIZUMAB
     Indication: Product used for unknown indication
     Route: 042
     Dates: start: 201011, end: 20110801
  2. PREDNISONE [Concomitant]
     Active Substance: PREDNISONE
     Route: 048
  3. METHOTREXATE SODIUM [Concomitant]
     Active Substance: METHOTREXATE SODIUM
     Route: 058

REACTIONS (4)
  - Uveitis [Recovered/Resolved]
  - Vitritis [Recovered/Resolved]
  - Visual acuity reduced [Recovered/Resolved]
  - Ocular lymphoma [Recovered/Resolved]

NARRATIVE: CASE EVENT DATE: 20110615
